FAERS Safety Report 5171712-X (Version None)
Quarter: 2006Q4

REPORT INFORMATION
  Report Type: 
  Country: None (occurrence: None)
  Receive Date: 20061213
  Receipt Date: 20001218
  Transmission Date: 20070319
  Serious: Yes (Hospitalization)
  Sender: FDA-Public Use
  Company Number: 2000SUS0984

PATIENT
  Age: 24 Hour
  Sex: Male
  Weight: 3 kg

DRUGS (9)
  1. SUSTIVA [Suspect]
     Route: 064
     Dates: end: 19990630
  2. RETROVIR [Concomitant]
     Dosage: T-PLACENTAL GESTINAL WK 36, MOTHER HAD INFUSION X1 AT DELIVERY,ALSO SYRUP PO FOR 6WK.
     Route: 064
     Dates: end: 20000127
  3. EPIVIR [Concomitant]
     Route: 048
  4. VIRAMUNE [Concomitant]
     Dosage: MOTHER TOOK 1 TABLET DURING DELIVERY, BABY HAD 1 DOSE OF SYRUP AT 2 DAYS OLD.
     Route: 064
     Dates: start: 20000127, end: 20000127
  5. COMBIVIR [Concomitant]
     Route: 064
  6. IRON [Concomitant]
     Route: 064
  7. VITAMIN [Concomitant]
     Route: 064
  8. PEVARYL [Concomitant]
     Route: 064
  9. GINKOR [Concomitant]
     Route: 064

REACTIONS (8)
  - ABORTION INDUCED [None]
  - ANAEMIA MACROCYTIC [None]
  - BLOOD CREATINE PHOSPHOKINASE INCREASED [None]
  - BLOOD LACTIC ACID INCREASED [None]
  - CAESAREAN SECTION [None]
  - DRUG EXPOSURE DURING PREGNANCY [None]
  - PLATELET COUNT INCREASED [None]
  - RETROGNATHIA [None]
